FAERS Safety Report 10025225 (Version 1)
Quarter: 2014Q1

REPORT INFORMATION
  Report Type: Spontaneous
  Country: US (occurrence: None)
  Receive Date: 20140318
  Receipt Date: 20140318
  Transmission Date: 20141002
  Serious: Yes (Hospitalization)
  Sender: FDA-Public Use
  Company Number: 2014030038

PATIENT
  Age: 55 Year
  Sex: Female
  Weight: 122.47 kg

DRUGS (3)
  1. TRILYTE WITH FLAVOR PACKS [Suspect]
     Indication: COLONOSCOPY
     Dosage: 8 OZ EVERY 10 MINUTES ORAL
     Route: 048
     Dates: start: 20140306, end: 20140306
  2. NEXIUM (ESOMEPRAZOLE MAGNESIUM) [Concomitant]
  3. LYRICA (PREGAMBLIN) [Concomitant]

REACTIONS (3)
  - Pulmonary oedema [None]
  - Pneumonia [None]
  - Product packaging issue [None]
